FAERS Safety Report 7776802-0 (Version None)
Quarter: 2011Q3

REPORT INFORMATION
  Report Type: 
  Country: None (occurrence: None)
  Receive Date: 20110923
  Receipt Date: 20110923
  Transmission Date: 20111222
  Serious: Yes (Hospitalization)
  Sender: FDA-Public Use
  Company Number: None

PATIENT
  Sex: Male
  Weight: 95.1 kg

DRUGS (1)
  1. INTERLEUKIN-2, RECOMBINANT (CHIRON; ALDESLEUKIN; PROLEUKIN) [Suspect]
     Dosage: 684 MU
     Dates: end: 20110913

REACTIONS (8)
  - RESPIRATORY DISTRESS [None]
  - PULMONARY OEDEMA [None]
  - PLEURAL EFFUSION [None]
  - LABORATORY TEST INTERFERENCE [None]
  - CAPILLARY LEAK SYNDROME [None]
  - STAPHYLOCOCCUS TEST POSITIVE [None]
  - HYPOXIA [None]
  - FLUID OVERLOAD [None]
